FAERS Safety Report 5570116-5 (Version None)
Quarter: 2007Q4

REPORT INFORMATION
  Report Type: 
  Country: None (occurrence: None)
  Receive Date: 20071220
  Receipt Date: 20071212
  Transmission Date: 20080405
  Serious: Yes (Hospitalization, Other)
  Sender: FDA-Public Use
  Company Number: GB-PFIZER INC-2006148531

PATIENT
  Age: 43 Year
  Sex: Male

DRUGS (10)
  1. DOXORUBICIN HYDROCHLORIDE [Suspect]
     Indication: BURKITT'S LYMPHOMA
     Dosage: TEXT:6DF
     Route: 042
     Dates: start: 19980101, end: 19980901
  2. PREDNISOLONE [Suspect]
     Indication: BURKITT'S LYMPHOMA
     Route: 048
     Dates: start: 19980401, end: 19980901
  3. CYCLOPHOSPHAMIDE [Suspect]
     Indication: BURKITT'S LYMPHOMA
     Dosage: TEXT:6DF
     Route: 042
     Dates: start: 19980101, end: 19980901
  4. CYTARABINE [Suspect]
     Indication: BURKITT'S LYMPHOMA
     Route: 037
  5. METHOTREXATE [Suspect]
     Indication: BURKITT'S LYMPHOMA
     Route: 037
     Dates: start: 19980101, end: 19980901
  6. HYDROCORTISONE [Suspect]
     Indication: BURKITT'S LYMPHOMA
     Route: 048
     Dates: start: 19980401, end: 19980901
  7. RITONAVIR [Suspect]
     Indication: ACQUIRED IMMUNODEFICIENCY SYNDROME
     Route: 048
  8. SAQUINAVIR [Suspect]
     Indication: ACQUIRED IMMUNODEFICIENCY SYNDROME
     Route: 048
     Dates: start: 19980401
  9. VINCRISTINE [Suspect]
     Indication: BURKITT'S LYMPHOMA
     Dosage: TEXT:6DF-FREQ:1 CYCLICAL
     Route: 042
     Dates: start: 19980401, end: 19980901
  10. COTRIM [Concomitant]
     Indication: ANTIFUNGAL PROPHYLAXIS

REACTIONS (3)
  - MULTIPLE FRACTURES [None]
  - OSTEONECROSIS [None]
  - OSTEOPOROSIS [None]
